FAERS Safety Report 6774712-9 (Version None)
Quarter: 2010Q2

REPORT INFORMATION
  Report Type: 
  Country: None (occurrence: None)
  Receive Date: 20100617
  Receipt Date: 20100607
  Transmission Date: 20101027
  Serious: Yes (Other)
  Sender: FDA-Public Use
  Company Number: IT-BRISTOL-MYERS SQUIBB COMPANY-15137300

PATIENT
  Age: 52 Year
  Sex: Male

DRUGS (10)
  1. ABATACEPT [Suspect]
     Indication: RHEUMATOID ARTHRITIS
     Dosage: WEEKS 0,2,4AND8.
  2. SALAZOPYRIN [Suspect]
     Indication: RHEUMATOID ARTHRITIS
  3. HYDROXYCHLOROQUINE [Suspect]
     Indication: RHEUMATOID ARTHRITIS
  4. METHOTREXATE [Suspect]
     Indication: RHEUMATOID ARTHRITIS
  5. LEFLUNOMIDE [Suspect]
     Indication: RHEUMATOID ARTHRITIS
  6. ADALIMUMAB [Suspect]
     Indication: RHEUMATOID ARTHRITIS
  7. INFLIXIMAB [Suspect]
     Indication: RHEUMATOID ARTHRITIS
  8. ETANERCEPT [Suspect]
     Indication: RHEUMATOID ARTHRITIS
  9. ANAKINRA [Suspect]
     Indication: RHEUMATOID ARTHRITIS
  10. RITUXIMAB [Suspect]
     Indication: RHEUMATOID ARTHRITIS

REACTIONS (1)
  - PSORIASIS [None]
